FAERS Safety Report 15721339 (Version 1)
Quarter: 2018Q4

REPORT INFORMATION
  Report Type: Spontaneous
  Country: ES (occurrence: ES)
  Receive Date: 20181214
  Receipt Date: 20181214
  Transmission Date: 20190205
  Serious: Yes (Death)
  Sender: FDA-Public Use
  Company Number: ES-009507513-1812ESP005949

PATIENT
  Age: 56 Year
  Sex: Male

DRUGS (4)
  1. RISPERIDONE. [Interacting]
     Active Substance: RISPERIDONE
     Indication: SCHIZOPHRENIA
     Dosage: 9 MILLIGRAM, QD
     Route: 048
     Dates: start: 2018, end: 20180920
  2. LEVOMEPROMAZINE [Interacting]
     Active Substance: LEVOMEPROMAZINE
     Indication: AGITATION
     Dosage: 25 MILLIGRAM, ONCE
     Route: 042
     Dates: start: 20180921, end: 20180921
  3. MIRTAZAPINE. [Suspect]
     Active Substance: MIRTAZAPINE
     Dosage: 45 MILLIGRAM, ONCE
     Route: 048
     Dates: start: 2018, end: 20180920
  4. HALOPERIDOL. [Interacting]
     Active Substance: HALOPERIDOL
     Indication: AGITATION
     Dosage: 5 MILLIGRAM, ONCE
     Route: 042
     Dates: start: 20180921, end: 20180921

REACTIONS (2)
  - Cardio-respiratory arrest [Fatal]
  - Death [Fatal]

NARRATIVE: CASE EVENT DATE: 20180921
